FAERS Safety Report 23674357 (Version 2)
Quarter: 2024Q4

REPORT INFORMATION
  Report Type: Spontaneous
  Country: US (occurrence: US)
  Receive Date: 20240326
  Receipt Date: 20241114
  Transmission Date: 20250115
  Serious: Yes (Hospitalization)
  Sender: PFIZER
  Company Number: US-PFIZER INC-202400071782

PATIENT
  Age: 61 Year
  Sex: Male

DRUGS (2)
  1. INLYTA [Suspect]
     Active Substance: AXITINIB
     Dosage: 1 TABLET TWICE DAILY BY MOUTH
     Route: 048
     Dates: end: 202403
  2. INLYTA [Suspect]
     Active Substance: AXITINIB
     Dosage: 1 TABLET TWICE DAILY

REACTIONS (3)
  - Skin ulcer [Unknown]
  - Wound [Unknown]
  - Renal disorder [Not Recovered/Not Resolved]
